FAERS Safety Report 19599942 (Version 1)
Quarter: 2021Q3

REPORT INFORMATION
  Report Type: Spontaneous
  Country: US (occurrence: US)
  Receive Date: 20210722
  Receipt Date: 20210722
  Transmission Date: 20211014
  Serious: No
  Sender: FDA-Public Use
  Company Number: None

PATIENT
  Age: 86 Year
  Sex: Male

DRUGS (1)
  1. KYNMOBI [Suspect]
     Active Substance: APOMORPHINE HYDROCHLORIDE
     Route: 060
     Dates: start: 202012

REACTIONS (4)
  - Decreased appetite [None]
  - Weight decreased [None]
  - Product taste abnormal [None]
  - Therapeutic product effect decreased [None]

NARRATIVE: CASE EVENT DATE: 20210722
